FAERS Safety Report 22050762 (Version 1)
Quarter: 2023Q1

REPORT INFORMATION
  Report Type: Spontaneous
  Country: CA (occurrence: CA)
  Receive Date: 20230301
  Receipt Date: 20230301
  Transmission Date: 20230418
  Serious: Yes (Other)
  Sender: FDA-Public Use
  Company Number: CA-PFIZER INC-202300082869

PATIENT
  Sex: Male

DRUGS (3)
  1. BOSUTINIB [Suspect]
     Active Substance: BOSUTINIB
     Route: 065
  2. DASATINIB [Suspect]
     Active Substance: DASATINIB
     Dosage: UNK
  3. IMATINIB MESYLATE [Suspect]
     Active Substance: IMATINIB MESYLATE
     Dosage: UNK

REACTIONS (4)
  - Acute myocardial infarction [Unknown]
  - Anaemia [Unknown]
  - Drug ineffective [Unknown]
  - Drug intolerance [Unknown]
